FAERS Safety Report 14232359 (Version 1)
Quarter: 2017Q4

REPORT INFORMATION
  Report Type: Spontaneous
  Country: US (occurrence: US)
  Receive Date: 20171128
  Receipt Date: 20171128
  Transmission Date: 20180321
  Serious: Yes (Hospitalization)
  Sender: FDA-Public Use
  Company Number: US-TASMAN PHARMA INC.-2036179

PATIENT
  Age: 57 Year
  Sex: Male

DRUGS (1)
  1. VERSACLOZ [Suspect]
     Active Substance: CLOZAPINE
     Indication: SCHIZOPHRENIA
     Route: 048

REACTIONS (2)
  - Pneumonia [None]
  - Sepsis [Unknown]

NARRATIVE: CASE EVENT DATE: 20171111
